FAERS Safety Report 6999867-2 (Version None)
Quarter: 2010Q3

REPORT INFORMATION
  Report Type: 
  Country: None (occurrence: None)
  Receive Date: 20100920
  Receipt Date: 20100331
  Transmission Date: 20110219
  Serious: Yes (Other)
  Sender: FDA-Public Use
  Company Number: US-ASTRAZENECA-2009SE25137

PATIENT
  Weight: 93.4 kg

DRUGS (16)
  1. SEROQUEL [Suspect]
     Indication: HALLUCINATION
     Dosage: 25 MG A DAY FOR ONE DAY, THEN INCREASED TO 50 MG A DAY FOR ONE MORE DAY AND THEN  100 MG A DAY
     Route: 048
     Dates: start: 20020101
  2. SEROQUEL [Suspect]
     Indication: INSOMNIA
     Dosage: 25 MG A DAY FOR ONE DAY, THEN INCREASED TO 50 MG A DAY FOR ONE MORE DAY AND THEN  100 MG A DAY
     Route: 048
     Dates: start: 20020101
  3. SEROQUEL [Suspect]
     Indication: PSYCHOTIC DISORDER
     Dosage: 25 MG A DAY FOR ONE DAY, THEN INCREASED TO 50 MG A DAY FOR ONE MORE DAY AND THEN  100 MG A DAY
     Route: 048
     Dates: start: 20020101
  4. SEROQUEL [Suspect]
     Dosage: IN THE PAST 100 MG, AGREED TO TAKE 50 MG
     Route: 048
     Dates: start: 20020901
  5. SEROQUEL [Suspect]
     Dosage: IN THE PAST 100 MG, AGREED TO TAKE 50 MG
     Route: 048
     Dates: start: 20020901
  6. SEROQUEL [Suspect]
     Dosage: IN THE PAST 100 MG, AGREED TO TAKE 50 MG
     Route: 048
     Dates: start: 20020901
  7. SEROQUEL [Suspect]
     Route: 048
     Dates: start: 20030301
  8. SEROQUEL [Suspect]
     Route: 048
     Dates: start: 20030301
  9. SEROQUEL [Suspect]
     Route: 048
     Dates: start: 20030301
  10. LEXAPRO [Concomitant]
     Indication: DEPRESSION
     Dates: start: 20040501
  11. XANAX [Concomitant]
     Indication: INSOMNIA
     Dates: start: 20040501
  12. SYNTHROID [Concomitant]
     Indication: HYPOTHYROIDISM
  13. WELLBUTRIN [Concomitant]
  14. PROZAC [Concomitant]
     Indication: DEPRESSION
     Route: 048
     Dates: start: 20020101
  15. ATIVAN [Concomitant]
     Dates: end: 20020201
  16. RISPERDAL [Concomitant]
     Indication: ANXIETY
     Route: 048
     Dates: start: 20020101

REACTIONS (4)
  - DIABETES MELLITUS [None]
  - HYPERGLYCAEMIA [None]
  - HYPOGLYCAEMIA [None]
  - VISION BLURRED [None]
